FAERS Safety Report 9241882 (Version 3)
Quarter: 2013Q3

REPORT INFORMATION
  Report Type: Report from Study
  Country: DE (occurrence: DE)
  Receive Date: 20130419
  Receipt Date: 20130910
  Transmission Date: 20140515
  Serious: Yes (Life-Threatening, Hospitalization)
  Sender: FDA-Public Use
  Company Number: DE-BAYER-2013-038742

PATIENT
  Sex: Female
  Weight: 67 kg

DRUGS (30)
  1. REGORAFENIB [Suspect]
     Indication: COLORECTAL CANCER METASTATIC
     Dosage: UNK
     Route: 048
     Dates: start: 20121212, end: 20130101
  2. REGORAFENIB [Suspect]
     Indication: COLORECTAL CANCER METASTATIC
     Dosage: UNK
     Route: 048
     Dates: start: 20121212, end: 20130101
  3. REGORAFENIB [Suspect]
     Indication: COLORECTAL CANCER METASTATIC
     Dosage: 160 MG, QD
     Route: 048
     Dates: start: 20130109, end: 20130129
  4. REGORAFENIB [Suspect]
     Indication: COLORECTAL CANCER METASTATIC
     Dosage: UNK
     Route: 048
     Dates: start: 20130109, end: 20130129
  5. REGORAFENIB [Suspect]
     Indication: COLORECTAL CANCER METASTATIC
     Dosage: UNK
     Route: 048
     Dates: start: 20130109, end: 20130129
  6. REGORAFENIB [Suspect]
     Indication: COLORECTAL CANCER METASTATIC
     Dosage: 120 MG, QD
     Route: 048
     Dates: start: 20130206, end: 20130226
  7. REGORAFENIB [Suspect]
     Indication: COLORECTAL CANCER METASTATIC
     Dosage: UNK
     Route: 048
     Dates: start: 20130206, end: 20130226
  8. REGORAFENIB [Suspect]
     Indication: COLORECTAL CANCER METASTATIC
     Dosage: UNK
     Route: 048
     Dates: start: 20130206, end: 20130226
  9. REGORAFENIB [Suspect]
     Indication: COLORECTAL CANCER METASTATIC
     Dosage: 120 MG, QD
     Route: 048
     Dates: start: 20130301, end: 20130322
  10. REGORAFENIB [Suspect]
     Indication: COLORECTAL CANCER METASTATIC
     Dosage: UNK
     Route: 048
     Dates: start: 20130301, end: 20130322
  11. REGORAFENIB [Suspect]
     Indication: COLORECTAL CANCER METASTATIC
     Dosage: UNK
     Route: 048
     Dates: start: 20130301, end: 20130322
  12. FENTANYL [Concomitant]
     Indication: SPINAL PAIN
     Dosage: 50 MG/ 72 H DAILY
     Route: 061
     Dates: start: 2012
  13. PANTOZOL [Concomitant]
     Indication: PROPHYLAXIS
     Dosage: 40 MG DAILY
     Route: 048
     Dates: start: 2012
  14. OPIPRAMOL [Concomitant]
     Indication: PANIC ATTACK
     Dosage: 50 MG DAILY
     Route: 048
     Dates: start: 2012
  15. CLEXANE [Concomitant]
     Indication: DEEP VEIN THROMBOSIS
     Dosage: 0,6 ML DAILY
     Route: 058
     Dates: start: 20120829
  16. IBUPROFEN [Concomitant]
     Indication: SPINAL PAIN
     Dosage: 1200 MG DAILY
     Route: 048
     Dates: start: 20120910
  17. NOVALGIN [Concomitant]
     Indication: SPINAL PAIN
     Dosage: 120 GTS DAILY
     Route: 048
     Dates: start: 20120927
  18. PAMIDRONATE [Concomitant]
     Indication: SPINAL PAIN
     Dosage: 90 MG (ILLEGIBLE INFORMATION)
     Route: 048
     Dates: start: 20130104
  19. RAMIPRIL [Concomitant]
     Indication: HYPERTENSION
     Dosage: DAILY DOSE 5 MG
     Route: 048
     Dates: start: 20130322
  20. TICAGRELOR [Concomitant]
     Indication: THROMBOSIS PROPHYLAXIS
     Dosage: DAILY DOSE 180 MG
     Route: 048
     Dates: start: 20130322
  21. PREGABALIN [Concomitant]
     Indication: POLYNEUROPATHY
     Dosage: DAILY DOSE 450 MG
  22. HYDROMORPHONE [Concomitant]
     Indication: SPINAL PAIN
     Dosage: DAILY DOSE 48 MG
     Route: 048
     Dates: start: 20130322
  23. REGORAFENIB [Suspect]
     Indication: COLORECTAL CANCER METASTATIC
     Dosage: 160 MG, QD
     Route: 048
     Dates: start: 20120912, end: 20121002
  24. REGORAFENIB [Suspect]
     Indication: COLORECTAL CANCER METASTATIC
     Dosage: 160 MG, QD
     Route: 048
     Dates: start: 20121010, end: 20121030
  25. REGORAFENIB [Suspect]
     Indication: COLORECTAL CANCER METASTATIC
     Dosage: UNK
     Route: 048
     Dates: start: 20121010, end: 20121030
  26. REGORAFENIB [Suspect]
     Indication: COLORECTAL CANCER METASTATIC
     Dosage: UNK
     Route: 048
     Dates: start: 20121010, end: 20121030
  27. REGORAFENIB [Suspect]
     Indication: COLORECTAL CANCER METASTATIC
     Dosage: 160 MG, QD
     Route: 048
     Dates: start: 20121107, end: 20121122
  28. REGORAFENIB [Suspect]
     Indication: COLORECTAL CANCER METASTATIC
     Dosage: UNK
     Route: 048
     Dates: start: 20121107, end: 20121122
  29. REGORAFENIB [Suspect]
     Indication: COLORECTAL CANCER METASTATIC
     Dosage: UNK
     Route: 048
     Dates: start: 20121107, end: 20121122
  30. REGORAFENIB [Suspect]
     Indication: COLORECTAL CANCER METASTATIC
     Dosage: 160 MG, QD
     Route: 048
     Dates: start: 20121212, end: 20130101

REACTIONS (1)
  - Myocardial infarction [Recovered/Resolved]
